FAERS Safety Report 7088215-8 (Version None)
Quarter: 2010Q4

REPORT INFORMATION
  Report Type: 
  Country: None (occurrence: None)
  Receive Date: 20101108
  Receipt Date: 20101014
  Transmission Date: 20110411
  Serious: Yes (Hospitalization)
  Sender: FDA-Public Use
  Company Number: US-BAYER-200944093NA

PATIENT
  Age: 50 Year
  Sex: Female
  Weight: 69 kg

DRUGS (5)
  1. YAZ [Suspect]
     Indication: CONTRACEPTION
     Route: 048
  2. YASMIN [Suspect]
     Indication: CONTRACEPTION
     Route: 048
     Dates: start: 20030101, end: 20040101
  3. YASMIN [Suspect]
     Route: 048
     Dates: start: 20080201, end: 20080701
  4. OCELLA [Suspect]
     Indication: CONTRACEPTION
     Route: 048
     Dates: start: 20080701, end: 20080801
  5. OCELLA [Suspect]
     Route: 048
     Dates: start: 20080701, end: 20080801

REACTIONS (3)
  - CARDIAC DISORDER [None]
  - DEEP VEIN THROMBOSIS [None]
  - PULMONARY EMBOLISM [None]
